FAERS Safety Report 15323168 (Version 1)
Quarter: 2018Q3

REPORT INFORMATION
  Report Type: Spontaneous
  Country: US (occurrence: US)
  Receive Date: 20180827
  Receipt Date: 20180827
  Transmission Date: 20181010
  Serious: No
  Sender: FDA-Public Use
  Company Number: US-PFIZER INC-2018340880

PATIENT
  Age: 55 Year
  Sex: Female

DRUGS (1)
  1. GENOTROPIN MQ [Suspect]
     Active Substance: SOMATROPIN
     Dosage: 0.8 MG, DAILY
     Dates: start: 201410

REACTIONS (15)
  - Amnesia [Unknown]
  - Emotional disorder [Unknown]
  - Glycosylated haemoglobin increased [Unknown]
  - Cortisol decreased [Unknown]
  - Non-high-density lipoprotein cholesterol increased [Unknown]
  - Low density lipoprotein increased [Unknown]
  - Bone density increased [Unknown]
  - Tinnitus [Unknown]
  - Tri-iodothyronine free decreased [Unknown]
  - Blood cholesterol increased [Unknown]
  - Libido increased [Unknown]
  - Back pain [Unknown]
  - Metabolic disorder [Unknown]
  - Vision blurred [Unknown]
  - Insulin-like growth factor increased [Unknown]

NARRATIVE: CASE EVENT DATE: 20180130
